FAERS Safety Report 8206949-6 (Version None)
Quarter: 2012Q1

REPORT INFORMATION
  Report Type: 
  Country: None (occurrence: None)
  Receive Date: 20120314
  Receipt Date: 20120302
  Transmission Date: 20120608
  Serious: Yes (Other)
  Sender: FDA-Public Use
  Company Number: US-SANOFI-AVENTIS-2012SA014700

PATIENT
  Sex: Female

DRUGS (3)
  1. SOLOSTAR [Suspect]
  2. LANTUS [Suspect]
     Dosage: DOSE:54 UNIT(S)
     Route: 058
  3. NOVOLOG [Concomitant]

REACTIONS (2)
  - RENAL TRANSPLANT [None]
  - HERNIA REPAIR [None]
